FAERS Safety Report 18687455 (Version 1)
Quarter: 2020Q4

REPORT INFORMATION
  Report Type: Spontaneous
  Country: US (occurrence: US)
  Receive Date: 20201231
  Receipt Date: 20201231
  Transmission Date: 20210114
  Serious: Yes (Hospitalization, Other)
  Sender: FDA-Public Use
  Company Number: US-HETERO-HET2020US01419

PATIENT
  Age: 32 Year
  Sex: Male

DRUGS (1)
  1. OMEPRAZOLE. [Suspect]
     Active Substance: OMEPRAZOLE
     Indication: GASTROOESOPHAGEAL REFLUX DISEASE
     Dosage: 40 MG, BID
     Route: 065

REACTIONS (5)
  - Liver abscess [Recovered/Resolved]
  - Incorrect product administration duration [Recovered/Resolved]
  - Bacterial infection [Recovered/Resolved]
  - Veillonella infection [Recovered/Resolved]
  - Blood creatinine increased [Recovered/Resolved]
